FAERS Safety Report 21501910 (Version 1)
Quarter: 2022Q4

REPORT INFORMATION
  Report Type: Spontaneous
  Country: CN (occurrence: None)
  Receive Date: 20221025
  Receipt Date: 20221025
  Transmission Date: 20230113
  Serious: Yes (Other)
  Sender: FDA-Public Use
  Company Number: CN-ROCHE-3205765

PATIENT

DRUGS (5)
  1. CELLCEPT [Suspect]
     Active Substance: MYCOPHENOLATE MOFETIL
     Indication: Gastric cancer
     Dosage: 21-DEC-2020, 22-DEC-2020, 23-DEC-2020
     Route: 065
  2. METHYLPREDNISOLONE [Concomitant]
     Active Substance: METHYLPREDNISOLONE
     Indication: Gastric cancer
     Dosage: 18-DEC-2020, 19-DEC-2020
  3. METHYLPREDNISOLONE [Concomitant]
     Active Substance: METHYLPREDNISOLONE
     Dosage: 20-DEC-2020, 21-DEC-2020, 22-DEC-2020, 23-DEC-2020
  4. VINCRISTINE [Concomitant]
     Active Substance: VINCRISTINE
     Indication: Gastric cancer
     Dosage: 19-DEC-2020, 20-DEC-2020
     Route: 041
  5. CEFOPERAZONE SODIUM\SULBACTAM SODIUM [Concomitant]
     Active Substance: CEFOPERAZONE SODIUM\SULBACTAM SODIUM
     Indication: Gastric cancer
     Dosage: 18-DEC-2020, 19-DEC-2020, 20-DEC-2020, 21-DEC-2020, 22-DEC-2020, 23-DEC-2020

REACTIONS (3)
  - Off label use [Unknown]
  - Biliary dilatation [Unknown]
  - Jaundice cholestatic [Unknown]

NARRATIVE: CASE EVENT DATE: 20210401
